FAERS Safety Report 12950406 (Version 2)
Quarter: 2017Q1

REPORT INFORMATION
  Report Type: Spontaneous
  Country: US (occurrence: US)
  Receive Date: 20161116
  Receipt Date: 20170118
  Transmission Date: 20170428
  Serious: Yes (Hospitalization, Disabling, Other)
  Sender: FDA-Public Use
  Company Number: US-ACTELION-A-US2016-145439

PATIENT
  Age: 40 Year
  Sex: Female
  Weight: 47.7 kg

DRUGS (13)
  1. ALBUTEROL. [Concomitant]
     Active Substance: ALBUTEROL
     Dosage: 2 PUFF, Q6H PRN
  2. FUROSEMIDE. [Concomitant]
     Active Substance: FUROSEMIDE
     Dosage: 40 MG, QD
     Route: 048
  3. PANTOPRAZOLE [Concomitant]
     Active Substance: PANTOPRAZOLE SODIUM
     Dosage: 40 MG, QAM
  4. PREDNISONE. [Concomitant]
     Active Substance: PREDNISONE
     Dosage: 20 MG, QD W/BREAKFAST
     Route: 048
  5. AMIODARONE [Concomitant]
     Active Substance: AMIODARONE
     Dosage: 400 MG, QD
  6. COREG [Concomitant]
     Active Substance: CARVEDILOL
     Dosage: 3.125 MG, Q12HRS
     Route: 048
  7. INSULIN [Concomitant]
     Active Substance: INSULIN NOS
  8. OPSUMIT [Suspect]
     Active Substance: MACITENTAN
     Indication: PULMONARY HYPERTENSION
     Dosage: 10 MG, QD
     Route: 048
     Dates: start: 201605, end: 20161204
  9. DIAMOX SEQUELS [Concomitant]
     Active Substance: ACETAZOLAMIDE
     Dosage: 250 MG, Q12HRS
     Route: 048
  10. LISINOPRIL. [Concomitant]
     Active Substance: LISINOPRIL
     Dosage: 2.5 MG, QD
     Route: 048
  11. DIGOXIN. [Concomitant]
     Active Substance: DIGOXIN
     Dosage: 125 MCG, QD
     Route: 048
  12. WARFARIN [Concomitant]
     Active Substance: WARFARIN
     Dosage: 3 MG, QD
     Route: 048
  13. VITAMIN B12 [Concomitant]
     Active Substance: CYANOCOBALAMIN
     Dosage: 100 MCG, QD

REACTIONS (20)
  - Pneumonia bacterial [Recovering/Resolving]
  - Diarrhoea [Unknown]
  - Hyponatraemia [Unknown]
  - Haemorrhoids [Recovering/Resolving]
  - Nasal congestion [Recovered/Resolved]
  - Drug dose omission [Recovered/Resolved]
  - Transfusion [Unknown]
  - Varices oesophageal [Unknown]
  - Chest pain [Recovered/Resolved]
  - Suicidal ideation [Recovered/Resolved]
  - Anaemia [Recovering/Resolving]
  - Headache [Recovered/Resolved]
  - Gastrointestinal haemorrhage [Recovering/Resolving]
  - Lactic acidosis [Recovering/Resolving]
  - Sepsis [Recovering/Resolving]
  - Depression [Unknown]
  - Hypoglycaemia [Unknown]
  - Dyspnoea [Recovered/Resolved]
  - Atrial flutter [Recovered/Resolved]
  - Ascites [Recovering/Resolving]

NARRATIVE: CASE EVENT DATE: 20161025
